FAERS Safety Report 22541640 (Version 1)
Quarter: 2023Q2

REPORT INFORMATION
  Report Type: Spontaneous
  Country: US (occurrence: None)
  Receive Date: 20230608
  Receipt Date: 20230608
  Transmission Date: 20230721
  Serious: Yes (Death)
  Sender: FDA-Public Use
  Company Number: None

PATIENT
  Age: 79 Year
  Sex: Female

DRUGS (21)
  1. LOKELMA [Suspect]
     Active Substance: SODIUM ZIRCONIUM CYCLOSILICATE
     Indication: Hyperkalaemia
     Dosage: 10GM ORAL??MIX AND DRINK 1 PACKET PO EVERY MON, WED, AND FRI
     Route: 048
     Dates: start: 20210122, end: 20230510
  2. HYDRALAZINE [Concomitant]
     Active Substance: HYDRALAZINE HYDROCHLORIDE
  3. ALPRAZOLAM [Concomitant]
  4. ASPIRIN [Concomitant]
  5. BREO ELLIPTA [Concomitant]
     Active Substance: FLUTICASONE FUROATE\VILANTEROL TRIFENATATE
  6. CALCITRIOL [Concomitant]
  7. DUONEB [Concomitant]
  8. ESTRADIOL [Concomitant]
     Active Substance: ESTRADIOL
  9. FERRPUS SULFATE [Concomitant]
  10. FLONASE [Concomitant]
     Active Substance: FLUTICASONE PROPIONATE
  11. HUMALOG [Concomitant]
     Active Substance: INSULIN LISPRO
  12. INSULIN LISPRO [Concomitant]
     Active Substance: INSULIN LISPRO
  13. LATANOPROST [Concomitant]
     Active Substance: LATANOPROST
  14. LEXAPRO [Concomitant]
     Active Substance: ESCITALOPRAM OXALATE
  15. MAGNESIUM OXIDE [Concomitant]
     Active Substance: MAGNESIUM OXIDE
  16. NIFEDIPINE [Concomitant]
  17. PRAVACHOL [Concomitant]
     Active Substance: PRAVASTATIN SODIUM
  18. PREGABALIN [Concomitant]
  19. SYNTHROID [Concomitant]
  20. TOPROL XL [Concomitant]
     Active Substance: METOPROLOL SUCCINATE
  21. TORSEMIDE [Concomitant]

REACTIONS (1)
  - Death [None]

NARRATIVE: CASE EVENT DATE: 20230510
